FAERS Safety Report 14836242 (Version 2)
Quarter: 2018Q2

REPORT INFORMATION
  Report Type: Spontaneous
  Country: SG (occurrence: SG)
  Receive Date: 20180502
  Receipt Date: 20180524
  Transmission Date: 20180711
  Serious: Yes (Death, Hospitalization)
  Sender: FDA-Public Use
  Company Number: SG-ROCHE-2096713

PATIENT
  Age: 79 Year
  Sex: Male

DRUGS (1)
  1. TECENTRIQ [Suspect]
     Active Substance: ATEZOLIZUMAB
     Indication: NON-SMALL CELL LUNG CANCER
     Dosage: 2ND INFUSION ON 11/APR/2018
     Route: 042

REACTIONS (7)
  - Chills [Unknown]
  - Pyrexia [Unknown]
  - Pneumothorax [Unknown]
  - Hypophysitis [Fatal]
  - Anaemia [Unknown]
  - Pneumonitis [Fatal]
  - Renal failure [Unknown]

NARRATIVE: CASE EVENT DATE: 20180322
